FAERS Safety Report 9178819 (Version 2)
Quarter: 2013Q4

REPORT INFORMATION
  Report Type: Spontaneous
  Country: US (occurrence: US)
  Receive Date: 20130321
  Receipt Date: 20131226
  Transmission Date: 20140711
  Serious: Yes (Other)
  Sender: FDA-Public Use
  Company Number: US-BAYER-2013-034373

PATIENT
  Age: 27 Year
  Sex: Female

DRUGS (5)
  1. YAZ [Suspect]
  2. YASMIN [Suspect]
  3. OCELLA [Suspect]
  4. ALLEGRA [Concomitant]
     Indication: RHINITIS ALLERGIC
     Dosage: 60 MG, UNK
  5. ZYBAN [Concomitant]
     Indication: TOBACCO USER

REACTIONS (4)
  - Cholecystectomy [None]
  - Injury [None]
  - Emotional distress [None]
  - Cholecystitis [None]
